FAERS Safety Report 11182856 (Version 2)
Quarter: 2015Q3

REPORT INFORMATION
  Report Type: Report from Study
  Country: US (occurrence: US)
  Receive Date: 20150611
  Receipt Date: 20150824
  Transmission Date: 20151125
  Serious: Yes (Hospitalization)
  Sender: FDA-Public Use
  Company Number: US-ASTELLAS-2015US019802

PATIENT
  Age: 6 Year
  Sex: Male
  Weight: 26 kg

DRUGS (5)
  1. NASONEX [Concomitant]
     Active Substance: MOMETASONE FUROATE
     Indication: RHINITIS ALLERGIC
     Dosage: 2 SPRAY (50 MCG/ACT)IN EACH NOSTRIL, ONCE DAILY
     Route: 045
     Dates: start: 20040204
  2. VENTOLIN [Concomitant]
     Active Substance: ALBUTEROL SULFATE
     Indication: ASTHMA
     Dosage: 2 PFUFFS (108MCG/ACT), EVERY 4 HOURS AS NEEDED (PRN)
     Route: 055
     Dates: start: 20040204
  3. ZYRTEC [Concomitant]
     Active Substance: CETIRIZINE HYDROCHLORIDE
     Indication: RHINITIS ALLERGIC
     Dosage: 5 MG/5 ML (1 TSP), TWICE DAILY
     Route: 048
     Dates: start: 20040204
  4. TACROLIMUS. [Suspect]
     Active Substance: TACROLIMUS
     Indication: DERMATITIS ATOPIC
     Dosage: 0.1 %, TWICE DAILY
     Route: 061
     Dates: start: 20040204
  5. EXTENDRYL [Concomitant]
     Indication: RHINITIS ALLERGIC
     Dosage: 1 TABLET, AT BED TIME (QHS), AS NEEDED
     Route: 048
     Dates: start: 20040204

REACTIONS (2)
  - Off label use [Unknown]
  - Type 1 diabetes mellitus [Not Recovered/Not Resolved]

NARRATIVE: CASE EVENT DATE: 20070311
